FAERS Safety Report 10236381 (Version 1)
Quarter: 2014Q2

REPORT INFORMATION
  Report Type: Spontaneous
  Country: US (occurrence: None)
  Receive Date: 20140612
  Receipt Date: 20140612
  Transmission Date: 20141212
  Serious: No
  Sender: FDA-Public Use
  Company Number: None

PATIENT
  Sex: Female
  Weight: 68.04 kg

DRUGS (2)
  1. ACTOS [Suspect]
     Dates: start: 2007
  2. ADVANDIA [Suspect]

REACTIONS (2)
  - Joint swelling [None]
  - Bladder cancer [None]
